FAERS Safety Report 7207772-1 (Version None)
Quarter: 2011Q1

REPORT INFORMATION
  Report Type: 
  Country: None (occurrence: None)
  Receive Date: 20110103
  Receipt Date: 20101220
  Transmission Date: 20110831
  Serious: Yes (Hospitalization)
  Sender: FDA-Public Use
  Company Number: TR-MYLANLABS-2010S1023533

PATIENT
  Age: 5 Year
  Sex: Male

DRUGS (3)
  1. VALPROIC ACID [Suspect]
     Indication: FEBRILE CONVULSION
     Dosage: 60 MG/KG/DAY FOR 3 YEARS
     Route: 065
  2. PARACETAMOL [Concomitant]
     Indication: UPPER RESPIRATORY TRACT INFECTION
     Dosage: 30 MG/KG/DAY, THREE DOSES
     Route: 065
  3. OXYMETAZOLINE HCL [Concomitant]
     Indication: UPPER RESPIRATORY TRACT INFECTION
     Dosage: 0.25 MG/ML, GIVEN 3 TIMES PER DAY
     Route: 045

REACTIONS (3)
  - HEPATIC FAILURE [None]
  - HEPATITIS A [None]
  - HEPATIC ENCEPHALOPATHY [None]
